FAERS Safety Report 17713144 (Version 1)
Quarter: 2020Q2

REPORT INFORMATION
  Report Type: Report from Study
  Country: US (occurrence: US)
  Receive Date: 20200427
  Receipt Date: 20200427
  Transmission Date: 20200714
  Serious: No
  Sender: FDA-Public Use
  Company Number: US-BIOVITRUM-2020US0376

PATIENT
  Age: 56 Year
  Sex: Male

DRUGS (2)
  1. KINERET [Suspect]
     Active Substance: ANAKINRA
     Indication: MONOCLONAL GAMMOPATHY
     Route: 058
     Dates: start: 20190408
  2. KINERET [Suspect]
     Active Substance: ANAKINRA
     Route: 058
     Dates: start: 201904

REACTIONS (9)
  - Abdominal pain upper [Unknown]
  - Monoclonal gammopathy [Unknown]
  - Pain [Unknown]
  - Condition aggravated [Unknown]
  - Injection site bruising [Unknown]
  - Off label use [Not Recovered/Not Resolved]
  - Gastrointestinal pain [Unknown]
  - Injection site reaction [Unknown]
  - Hyperaesthesia [Unknown]

NARRATIVE: CASE EVENT DATE: 20190408
